FAERS Safety Report 24416187 (Version 2)
Quarter: 2024Q4

REPORT INFORMATION
  Report Type: Spontaneous
  Country: DE (occurrence: DE)
  Receive Date: 20241009
  Receipt Date: 20241028
  Transmission Date: 20250115
  Serious: Yes (Hospitalization, Other)
  Sender: AUROBINDO
  Company Number: DE-BRISTOL-MYERS SQUIBB COMPANY-BMS-2019-095625

PATIENT
  Age: 70 Year
  Sex: Male
  Weight: 78 kg

DRUGS (19)
  1. AMPICILLIN AND SULBACTAM [Suspect]
     Active Substance: AMPICILLIN SODIUM\SULBACTAM SODIUM
     Indication: Diarrhoea
     Dosage: UNK
     Route: 065
  2. OPDIVO [Suspect]
     Active Substance: NIVOLUMAB
     Indication: Malignant melanoma
     Dosage: 78 MILLIGRAM (3 WEEK)
     Route: 042
     Dates: start: 20190703, end: 20190703
  3. YERVOY [Suspect]
     Active Substance: IPILIMUMAB
     Indication: Malignant melanoma
     Dosage: 234 MILLIGRAM
     Route: 065
     Dates: start: 20190703, end: 20190703
  4. BUTYLSCOPOLAMINIUMBROMID [Concomitant]
     Indication: Product used for unknown indication
     Dosage: UNK
     Route: 065
  5. BISOPROLOL [Concomitant]
     Active Substance: BISOPROLOL\BISOPROLOL FUMARATE
     Indication: Product used for unknown indication
     Dosage: UNK
     Route: 048
     Dates: start: 20190715, end: 20210228
  6. BISOPROLOL [Concomitant]
     Active Substance: BISOPROLOL\BISOPROLOL FUMARATE
     Indication: Sinus tachycardia
  7. METOCLOPRAMIDE HYDROCHLORIDE [Concomitant]
     Active Substance: METOCLOPRAMIDE HYDROCHLORIDE
     Indication: Product used for unknown indication
     Dosage: 30 MG/M?
     Route: 042
     Dates: start: 20190715, end: 20210228
  8. METOCLOPRAMIDE HYDROCHLORIDE [Concomitant]
     Active Substance: METOCLOPRAMIDE HYDROCHLORIDE
     Indication: Vomiting
  9. SODIUM CHLORIDE [Concomitant]
     Active Substance: SODIUM CHLORIDE
     Indication: Product used for unknown indication
     Dosage: UNK
     Route: 065
  10. POTASSIUM CHLORIDE [Concomitant]
     Active Substance: POTASSIUM CHLORIDE
     Indication: Product used for unknown indication
     Dosage: 160 MILLIGRAM (ACTIVE SUBSTANCE: KALIUMCHLORID, DAILY DOSE: 160 UNBEKANNT,APPLICATION ROUTE: PER ORA
     Route: 048
     Dates: start: 20190715, end: 20190729
  11. POTASSIUM CHLORIDE [Concomitant]
     Active Substance: POTASSIUM CHLORIDE
     Dosage: 20 MILLIGRAM (DAILY DOSE: 20 UNBEKANNT, APPLICATION ROUTE: INTRAVENOUS, PHARMACEUTICAL FORM: INFUSIO
     Route: 042
     Dates: start: 20190715, end: 20190729
  12. RIVAROXABAN [Concomitant]
     Active Substance: RIVAROXABAN
     Indication: Product used for unknown indication
     Dosage: UNK
     Route: 065
  13. PREDNICARBATE [Concomitant]
     Active Substance: PREDNICARBATE
     Indication: Autoimmune disorder
     Dosage: UNK
     Route: 048
     Dates: start: 20190730, end: 20190815
  14. GANCICLOVIR [Concomitant]
     Active Substance: GANCICLOVIR
     Indication: Cytomegalovirus infection
     Dosage: 300 MILLIGRAM, ONCE A DAY
     Route: 042
     Dates: start: 20190729, end: 20190815
  15. ENOXAPARIN SODIUM [Concomitant]
     Active Substance: ENOXAPARIN SODIUM
     Indication: Sinus tachycardia
     Dosage: 120 MILLIGRAM, ONCE A DAY
     Route: 058
     Dates: start: 20190715, end: 20190816
  16. MAGNESIUM [Concomitant]
     Active Substance: MAGNESIUM
     Indication: Sinus tachycardia
     Dosage: 120 MILLIGRAM, ONCE A DAY
     Route: 048
     Dates: start: 20190717, end: 20210228
  17. MAGNESIUM [Concomitant]
     Active Substance: MAGNESIUM
     Indication: Vomiting
     Dosage: 270 MILLIGRAM, ONCE A DAY
     Route: 048
     Dates: start: 20190717, end: 20210228
  18. METHYLPREDNISOLONE [Concomitant]
     Active Substance: METHYLPREDNISOLONE
     Indication: Autoimmune disorder
     Dosage: UNK
     Route: 065
  19. PANTOPRAZOLE [Suspect]
     Active Substance: PANTOPRAZOLE
     Indication: Product used for unknown indication
     Dosage: UNK
     Route: 065

REACTIONS (10)
  - Atrial fibrillation [Recovering/Resolving]
  - Autoimmune disorder [Recovered/Resolved]
  - Diarrhoea [Recovered/Resolved]
  - Hypokalaemia [Recovered/Resolved]
  - Acute kidney injury [Recovered/Resolved]
  - Vomiting [Recovered/Resolved]
  - Cytomegalovirus infection [Unknown]
  - Abdominal pain [Recovered/Resolved]
  - Drug eruption [Recovered/Resolved]
  - Sinus tachycardia [Recovered/Resolved]

NARRATIVE: CASE EVENT DATE: 20190715
